FAERS Safety Report 7688703-7 (Version None)
Quarter: 2011Q3

REPORT INFORMATION
  Report Type: 
  Country: None (occurrence: None)
  Receive Date: 20110817
  Receipt Date: 20110808
  Transmission Date: 20111222
  Serious: Yes (Death, Life-Threatening, Hospitalization, Disabling)
  Sender: FDA-Public Use
  Company Number: JP-GLAXOSMITHKLINE-B0703401A

PATIENT
  Sex: Male
  Weight: 59 kg

DRUGS (11)
  1. TACROLIMUS [Concomitant]
     Indication: IMMUNOSUPPRESSION
     Dosage: 1MG PER DAY
     Route: 065
     Dates: start: 20070608, end: 20070718
  2. SEROTONE [Concomitant]
     Dosage: 10MG PER DAY
     Route: 042
     Dates: start: 20070608, end: 20070610
  3. CIPROFLOXACIN HCL [Concomitant]
     Dosage: 600MG PER DAY
     Route: 048
     Dates: start: 20070608, end: 20070618
  4. DEPAS [Concomitant]
     Dosage: 1MG PER DAY
     Route: 048
     Dates: start: 20070608, end: 20070610
  5. FLUDARA [Suspect]
     Indication: STEM CELL TRANSPLANT
     Dosage: 30MGM2 PER DAY
     Route: 042
     Dates: start: 20070607, end: 20070610
  6. GASLON N [Concomitant]
     Dosage: 4MG PER DAY
     Route: 048
     Dates: start: 20070608, end: 20070626
  7. ALKERAN [Suspect]
     Indication: STEM CELL TRANSPLANT
     Dosage: 50MGM2 PER DAY
     Route: 042
     Dates: start: 20070608, end: 20070609
  8. GRAN [Concomitant]
     Dates: start: 20070616, end: 20070624
  9. MAGNESIUM OXIDE [Concomitant]
     Dosage: 1.5G PER DAY
     Route: 048
     Dates: start: 20070608, end: 20070618
  10. URSO 250 [Concomitant]
     Dosage: 300MG PER DAY
     Route: 048
     Dates: start: 20070608, end: 20070626
  11. ZOVIRAX [Concomitant]
     Dosage: 600MG PER DAY
     Route: 048
     Dates: start: 20070608, end: 20070626

REACTIONS (17)
  - RASH [None]
  - THROMBOTIC MICROANGIOPATHY [None]
  - PULMONARY MYCOSIS [None]
  - ABDOMINAL DISTENSION [None]
  - OXYGEN SATURATION DECREASED [None]
  - HYPERNATRAEMIA [None]
  - C-REACTIVE PROTEIN [None]
  - PYREXIA [None]
  - DIARRHOEA [None]
  - DISORIENTATION [None]
  - ACUTE GRAFT VERSUS HOST DISEASE [None]
  - HYPOALBUMINAEMIA [None]
  - RENAL DISORDER [None]
  - JAUNDICE [None]
  - LUNG INFILTRATION [None]
  - HYPERBILIRUBINAEMIA [None]
  - HYPERKALAEMIA [None]
